FAERS Safety Report 12471609 (Version 1)
Quarter: 2016Q2

REPORT INFORMATION
  Report Type: Spontaneous
  Country: US (occurrence: None)
  Receive Date: 20160615
  Receipt Date: 20160615
  Transmission Date: 20160815
  Serious: Yes (Hospitalization)
  Sender: FDA-Public Use
  Company Number: None

PATIENT
  Age: 75 Year
  Sex: Male
  Weight: 95.5 kg

DRUGS (14)
  1. FLOMAX [Concomitant]
     Active Substance: TAMSULOSIN HYDROCHLORIDE
  2. TOBREX [Concomitant]
     Active Substance: TOBRAMYCIN
  3. DIFLUPREDNATE [Concomitant]
     Active Substance: DIFLUPREDNATE
  4. SYNTHROID [Concomitant]
     Active Substance: LEVOTHYROXINE SODIUM
  5. PROTONIX [Concomitant]
     Active Substance: PANTOPRAZOLE SODIUM
  6. APIXABAN [Suspect]
     Active Substance: APIXABAN
     Indication: ATRIAL FIBRILLATION
     Route: 048
  7. ZAROXOLYN [Concomitant]
     Active Substance: METOLAZONE
  8. DEMADEX [Concomitant]
     Active Substance: TORSEMIDE
  9. ISORDIL [Concomitant]
     Active Substance: ISOSORBIDE DINITRATE
  10. KCL [Concomitant]
     Active Substance: POTASSIUM CHLORIDE
  11. ZOLOFT [Concomitant]
     Active Substance: SERTRALINE HYDROCHLORIDE
  12. CRESTOR [Concomitant]
     Active Substance: ROSUVASTATIN CALCIUM
  13. AMIODARONE [Suspect]
     Active Substance: AMIODARONE
     Indication: ATRIAL FIBRILLATION
     Route: 048
  14. ULTRAM [Concomitant]
     Active Substance: TRAMADOL HYDROCHLORIDE

REACTIONS (3)
  - Fall [None]
  - Subdural haematoma [None]
  - Laceration [None]

NARRATIVE: CASE EVENT DATE: 20150920
